FAERS Safety Report 13648461 (Version 1)
Quarter: 2017Q2

REPORT INFORMATION
  Report Type: Spontaneous
  Country: FR (occurrence: FR)
  Receive Date: 20170613
  Receipt Date: 20170613
  Transmission Date: 20170830
  Serious: Yes (Hospitalization)
  Sender: FDA-Public Use
  Company Number: FR-BAYER-2017-110309

PATIENT
  Age: 42 Year
  Sex: Female

DRUGS (1)
  1. MIRENA [Suspect]
     Active Substance: LEVONORGESTREL
     Indication: CONTRACEPTION
     Dosage: 20 MCG/24HR, CONT
     Route: 015
     Dates: start: 20140901, end: 20160301

REACTIONS (6)
  - Abdominal distension [Unknown]
  - Affective disorder [Unknown]
  - Hypertrichosis [Unknown]
  - Loss of libido [Unknown]
  - Breast cancer [Unknown]
  - Fatigue [Unknown]
